FAERS Safety Report 16750191 (Version 3)
Quarter: 2019Q3

REPORT INFORMATION
  Report Type: Spontaneous
  Country: US (occurrence: US)
  Receive Date: 20190828
  Receipt Date: 20190924
  Transmission Date: 20191005
  Serious: No
  Sender: FDA-Public Use
  Company Number: US-PFIZER INC-2019333345

PATIENT
  Age: 76 Year
  Sex: Female

DRUGS (2)
  1. IBRANCE [Suspect]
     Active Substance: PALBOCICLIB
     Indication: BREAST CANCER METASTATIC
     Dosage: 125 MG, UNK
  2. IBRANCE [Suspect]
     Active Substance: PALBOCICLIB
     Dosage: 100 MG, CYCLIC (OFF 21 DAYS/28 DAYS)
     Route: 048

REACTIONS (5)
  - Fatigue [Unknown]
  - Lymphoedema [Unknown]
  - Tumour marker increased [Recovering/Resolving]
  - Asthenia [Unknown]
  - Malaise [Unknown]
